FAERS Safety Report 6895499-5 (Version None)
Quarter: 2010Q3

REPORT INFORMATION
  Report Type: 
  Country: None (occurrence: None)
  Receive Date: 20100802
  Receipt Date: 20100723
  Transmission Date: 20110219
  Serious: Yes (Hospitalization, Other)
  Sender: FDA-Public Use
  Company Number: PHHO2009JP06447

PATIENT
  Sex: Male
  Weight: 73 kg

DRUGS (17)
  1. NEORAL [Suspect]
     Indication: RENAL TRANSPLANT
     Dosage: UNK
     Route: 048
     Dates: start: 20090512, end: 20090521
  2. NEORAL [Suspect]
     Dosage: UNK
     Route: 048
     Dates: start: 20090524
  3. MYCOPHENOLATE MOFETIL [Suspect]
     Indication: RENAL TRANSPLANT
     Dosage: 2 G DAILY
     Route: 048
     Dates: start: 20090515, end: 20090521
  4. MYCOPHENOLATE MOFETIL [Suspect]
     Dosage: UNK
     Route: 048
     Dates: start: 20090524, end: 20090529
  5. MYCOPHENOLATE MOFETIL [Suspect]
     Dosage: 750 MG DAILY
     Route: 048
     Dates: start: 20090605, end: 20090612
  6. MYCOPHENOLATE MOFETIL [Suspect]
     Dosage: 1 G DAILY
     Route: 048
     Dates: start: 20090612, end: 20090616
  7. MYCOPHENOLATE MOFETIL [Suspect]
     Dosage: UNK
     Dates: start: 20090619, end: 20090101
  8. MYCOPHENOLATE MOFETIL [Suspect]
     Dosage: 1 G DAILY
     Dates: start: 20090706
  9. PREDNISOLONE [Suspect]
     Indication: RENAL TRANSPLANT
     Dosage: UNK
     Route: 048
     Dates: start: 20090517, end: 20090521
  10. PREDNISOLONE [Suspect]
     Dosage: UNK
     Route: 048
     Dates: start: 20090101
  11. SANDIMMUNE [Concomitant]
  12. RABEPRAZOLE SODIUM [Concomitant]
  13. PANCREAZE [Concomitant]
  14. ULCERLMIN [Concomitant]
  15. ADALAT [Concomitant]
  16. DOXAZOSIN MESYLATE [Concomitant]
  17. LASIX [Concomitant]

REACTIONS (22)
  - ABDOMINAL DISCOMFORT [None]
  - ABDOMINAL PAIN [None]
  - ABDOMINAL PAIN UPPER [None]
  - DIARRHOEA [None]
  - DIZZINESS [None]
  - GASTRITIS [None]
  - GINGIVAL HYPERTROPHY [None]
  - GINGIVITIS [None]
  - HAEMORRHAGE SUBCUTANEOUS [None]
  - HYPOPHAGIA [None]
  - INTRA-ABDOMINAL HAEMATOMA [None]
  - KIDNEY RUPTURE [None]
  - KIDNEY TRANSPLANT REJECTION [None]
  - MALAISE [None]
  - OEDEMA [None]
  - ORAL HERPES [None]
  - PYREXIA [None]
  - RENAL IMPAIRMENT [None]
  - SURGERY [None]
  - URINE OUTPUT DECREASED [None]
  - VOMITING [None]
  - WEIGHT INCREASED [None]
